FAERS Safety Report 13790497 (Version 1)
Quarter: 2017Q3

REPORT INFORMATION
  Report Type: Spontaneous
  Country: US (occurrence: US)
  Receive Date: 20170725
  Receipt Date: 20170725
  Transmission Date: 20171127
  Serious: Yes (Hospitalization, Other)
  Sender: FDA-Public Use
  Company Number: US-GLAXOSMITHKLINE-US2017114834

PATIENT
  Age: 66 Year
  Sex: Male

DRUGS (6)
  1. ASPIRIN. [Concomitant]
     Active Substance: ASPIRIN
  2. RANITIDINE. [Concomitant]
     Active Substance: RANITIDINE
  3. BREO ELLIPTA [Suspect]
     Active Substance: FLUTICASONE FUROATE\VILANTEROL TRIFENATATE
     Indication: ASTHMA
     Dosage: 1 PUFF(S), QD
     Route: 055
  4. LYRICA [Concomitant]
     Active Substance: PREGABALIN
  5. DICLOFENAC [Concomitant]
     Active Substance: DICLOFENAC
  6. METAMIZOLE [Concomitant]
     Active Substance: METAMIZOLE

REACTIONS (4)
  - Liver disorder [Unknown]
  - Knee arthroplasty [Unknown]
  - Dizziness [Unknown]
  - Asthenia [Unknown]

NARRATIVE: CASE EVENT DATE: 201704
